FAERS Safety Report 4392991-2 (Version None)
Quarter: 2004Q3

REPORT INFORMATION
  Report Type: 
  Country: None (occurrence: None)
  Receive Date: 20040702
  Receipt Date: 20040622
  Transmission Date: 20050211
  Serious: Yes (Hospitalization, Other)
  Sender: FDA-Public Use
  Company Number: 2004034294

PATIENT
  Age: 63 Year
  Sex: Male

DRUGS (4)
  1. SULPERAZON (CEFOPERAZONE, SULBACTAM) [Suspect]
     Indication: CHOLANGITIS
     Dosage: 2 GRAM (1 GRAM, 2 IN 1 D), INTRAVENOUS
     Route: 042
     Dates: start: 20040510, end: 20040520
  2. SULPERAZON (CEFOPERAZONE, SULBACTAM) [Suspect]
     Indication: CHOLECYSTITIS
     Dosage: 2 GRAM (1 GRAM, 2 IN 1 D), INTRAVENOUS
     Route: 042
     Dates: start: 20040510, end: 20040520
  3. URSODEOXYCHOLIC ACID (URSODEOXYCHOLIC ACID) [Suspect]
     Indication: CHOLELITHIASIS
     Dosage: 600 MG (200 MG, 3 IN 1D), ORAL
     Route: 048
     Dates: start: 20040517, end: 20040520
  4. MAGNESIUM OXIDE (MAGNESIUM OXIDE) [Suspect]
     Indication: CONSTIPATION
     Dosage: 990 MG (330 MG, 3 IN 1 D), ORAL
     Route: 048
     Dates: start: 20040517, end: 20040520

REACTIONS (3)
  - CHOLESTASIS [None]
  - EXANTHEM [None]
  - PRURITUS GENERALISED [None]
